FAERS Safety Report 16478297 (Version 3)
Quarter: 2019Q3

REPORT INFORMATION
  Report Type: Report from Study
  Country: JP (occurrence: JP)
  Receive Date: 20190626
  Receipt Date: 20190820
  Transmission Date: 20191004
  Serious: Yes (Life-Threatening, Other)
  Sender: FDA-Public Use
  Company Number: JP-PFIZER INC-2019263840

PATIENT
  Age: 60 Year
  Sex: Female
  Weight: 53 kg

DRUGS (17)
  1. FOLIAMIN [Concomitant]
     Active Substance: FOLIC ACID
     Route: 048
  2. TOCOPHEROL [Concomitant]
     Active Substance: TOCOPHEROL
     Route: 048
  3. KENALOG [Concomitant]
     Active Substance: TRIAMCINOLONE ACETONIDE
     Route: 048
  4. MIYA-BM [Concomitant]
     Active Substance: CLOSTRIDIUM BUTYRICUM SPORES STRAIN M-55
     Dosage: UNK
     Route: 048
     Dates: start: 20171127
  5. LYRICA [Concomitant]
     Active Substance: PREGABALIN
     Route: 048
  6. PICOSULFATE [Concomitant]
     Active Substance: SODIUM PICOSULFATE
     Route: 048
  7. RHEUMATREX [Suspect]
     Active Substance: METHOTREXATE SODIUM
     Indication: RHEUMATOID ARTHRITIS
     Dosage: 10 MG, WEEKLY
  8. AZUNOL #1 [Concomitant]
     Route: 048
  9. CELECOX [Concomitant]
     Active Substance: CELECOXIB
     Route: 048
  10. BEZAFIBRATE [Concomitant]
     Active Substance: BEZAFIBRATE
     Route: 048
  11. LAC-B [Concomitant]
     Active Substance: BIFIDOBACTERIUM SPP.
     Route: 048
  12. XELJANZ [Suspect]
     Active Substance: TOFACITINIB CITRATE
     Indication: RHEUMATOID ARTHRITIS
     Dosage: 5 MG, 2X/DAY
     Route: 048
     Dates: start: 20170428, end: 20180604
  13. CEREKINON [Concomitant]
     Active Substance: TRIMEBUTINE
     Route: 048
  14. MECOBALAMIN [Concomitant]
     Active Substance: METHYLCOBALAMIN
     Route: 048
  15. LUNESTA [Concomitant]
     Active Substance: ESZOPICLONE
     Route: 048
  16. DEXTROMETHORPHAN [Concomitant]
     Active Substance: DEXTROMETHORPHAN
     Route: 048
  17. TRIAZOLAM. [Concomitant]
     Active Substance: TRIAZOLAM
     Route: 048

REACTIONS (1)
  - Uterine cancer [Unknown]

NARRATIVE: CASE EVENT DATE: 201806
